FAERS Safety Report 20126749 (Version 1)
Quarter: 2021Q4

REPORT INFORMATION
  Report Type: Spontaneous
  Country: US (occurrence: None)
  Receive Date: 20211128
  Receipt Date: 20211128
  Transmission Date: 20220303
  Serious: Yes (Other)
  Sender: FDA-Public Use
  Company Number: None

PATIENT
  Age: 26 Year
  Sex: Male

DRUGS (2)
  1. .DELTA.8-TETRAHYDROCANNABINOL\HERBALS [Suspect]
     Active Substance: .DELTA.8-TETRAHYDROCANNABINOL\HERBALS
     Indication: Product used for unknown indication
     Dates: start: 20211127, end: 20211127
  2. lithium carbonate 900 mg [Concomitant]

REACTIONS (7)
  - Poisoning [None]
  - Loss of consciousness [None]
  - Impaired ability to use machinery [None]
  - Speech disorder [None]
  - Visual impairment [None]
  - Dysstasia [None]
  - Euphoric mood [None]

NARRATIVE: CASE EVENT DATE: 20211127
